FAERS Safety Report 13108990 (Version 1)
Quarter: 2017Q1

REPORT INFORMATION
  Report Type: Spontaneous
  Country: US (occurrence: US)
  Receive Date: 20170112
  Receipt Date: 20170112
  Transmission Date: 20170428
  Serious: Yes (Other)
  Sender: FDA-Public Use
  Company Number: US-ELI_LILLY_AND_COMPANY-US201607011869

PATIENT
  Age: 64 Year
  Sex: Female
  Weight: 74 kg

DRUGS (4)
  1. CYMBALTA [Suspect]
     Active Substance: DULOXETINE HYDROCHLORIDE
     Dosage: 60 MG, BID
     Route: 048
     Dates: end: 201412
  2. CYMBALTA [Suspect]
     Active Substance: DULOXETINE HYDROCHLORIDE
     Dosage: 30 MG, QD
     Route: 048
     Dates: start: 20131007, end: 20131013
  3. CYMBALTA [Suspect]
     Active Substance: DULOXETINE HYDROCHLORIDE
     Indication: PRODUCT USED FOR UNKNOWN INDICATION
     Dosage: UNK, UNKNOWN
     Route: 065
     Dates: start: 20130905
  4. CYMBALTA [Suspect]
     Active Substance: DULOXETINE HYDROCHLORIDE
     Dosage: 60 MG, QD
     Route: 048
     Dates: start: 20131014

REACTIONS (27)
  - Dysphoria [Unknown]
  - Lethargy [Unknown]
  - Confusional state [Unknown]
  - Muscle spasms [Unknown]
  - Agitation [Unknown]
  - Vertigo [Unknown]
  - Fatigue [Unknown]
  - Suicidal ideation [Unknown]
  - Feeling abnormal [Unknown]
  - Drug withdrawal syndrome [Unknown]
  - Anxiety [Unknown]
  - Diarrhoea [Unknown]
  - Irritability [Unknown]
  - Insomnia [Unknown]
  - Hot flush [Unknown]
  - Affect lability [Unknown]
  - Headache [Unknown]
  - Hyperhidrosis [Unknown]
  - Sensory disturbance [Unknown]
  - Tremor [Unknown]
  - Vomiting [Unknown]
  - Pain in extremity [Unknown]
  - Oedema peripheral [Unknown]
  - Myalgia [Unknown]
  - Nausea [Unknown]
  - Paraesthesia [Unknown]
  - Hypertension [Unknown]

NARRATIVE: CASE EVENT DATE: 201412
